FAERS Safety Report 17015070 (Version 1)
Quarter: 2019Q4

REPORT INFORMATION
  Report Type: Spontaneous
  Country: CO (occurrence: CO)
  Receive Date: 20191111
  Receipt Date: 20191111
  Transmission Date: 20200122
  Serious: Yes (Hospitalization)
  Sender: FDA-Public Use
  Company Number: NVSC2019CO026786

PATIENT
  Age: 32 Year
  Sex: Female
  Weight: 50 kg

DRUGS (3)
  1. MYCOPHENOLATE MOFETIL. [Suspect]
     Active Substance: MYCOPHENOLATE MOFETIL
     Indication: RENAL TRANSPLANT
     Dosage: 500 MG, Q12H
     Route: 048
     Dates: start: 20190217
  2. TACROLIMUS. [Suspect]
     Active Substance: TACROLIMUS
     Indication: RENAL TRANSPLANT
     Dosage: 1 MG, Q12H
     Route: 048
     Dates: start: 201903
  3. OMEPRAZOLE. [Concomitant]
     Active Substance: OMEPRAZOLE
     Indication: PRODUCT USED FOR UNKNOWN INDICATION
     Dosage: 20 MG, QD (IN THE MORNING), 6 YEARS AGO
     Route: 048

REACTIONS (7)
  - Nasal congestion [Recovering/Resolving]
  - Influenza [Recovering/Resolving]
  - Tachycardia [Recovered/Resolved]
  - Pulmonary fistula [Unknown]
  - Chills [Recovered/Resolved]
  - Fistula [Unknown]
  - Arteriovenous fistula [Unknown]

NARRATIVE: CASE EVENT DATE: 201903
